FAERS Safety Report 18433276 (Version 1)
Quarter: 2020Q4

REPORT INFORMATION
  Report Type: Spontaneous
  Country: US (occurrence: US)
  Receive Date: 20201028
  Receipt Date: 20201028
  Transmission Date: 20210114
  Serious: Yes (Other)
  Sender: FDA-Public Use
  Company Number: US-AMGEN-USASP2020172565

PATIENT
  Age: 75 Year
  Sex: Male

DRUGS (27)
  1. CELLCEPT [Suspect]
     Active Substance: MYCOPHENOLATE MOFETIL\MYCOPHENOLATE MOFETIL HYDROCHLORIDE
     Indication: PEMPHIGOID
     Dosage: UNK
     Route: 065
  2. CELECOXIB. [Concomitant]
     Active Substance: CELECOXIB
     Dosage: UNK
     Route: 065
  3. OMEPRAZOLE. [Concomitant]
     Active Substance: OMEPRAZOLE
  4. HYDROCHLOROTIAZID [Concomitant]
     Dosage: UNK
     Route: 065
  5. OXYBUTYNIN. [Concomitant]
     Active Substance: OXYBUTYNIN CHLORIDE
  6. DULOXETINE. [Concomitant]
     Active Substance: DULOXETINE
     Dosage: UNK
     Route: 065
  7. VITAMIN D [VITAMIN D NOS] [Concomitant]
     Active Substance: VITAMIN D NOS
  8. OTEZLA [Suspect]
     Active Substance: APREMILAST
     Indication: PEMPHIGOID
     Dosage: 30 MILLIGRAM, BID
     Route: 048
     Dates: start: 20200923
  9. ASPIRIN [ACETYLSALICYLIC ACID] [Concomitant]
     Active Substance: ASPIRIN
     Dosage: UNK
     Route: 065
  10. COLCHICINE. [Concomitant]
     Active Substance: COLCHICINE
     Dosage: UNK
     Route: 065
  11. LANTUS [Concomitant]
     Active Substance: INSULIN GLARGINE
     Dosage: UNK
     Route: 065
  12. PREDNISOLONE. [Concomitant]
     Active Substance: PREDNISOLONE
  13. AMLODIPINE [Concomitant]
     Active Substance: AMLODIPINE BESYLATE
     Dosage: UNK
     Route: 065
  14. HYDROCODONE/ACETAMINOPHEN [Concomitant]
     Active Substance: ACETAMINOPHEN\HYDROCODONE
     Dosage: UNK
     Route: 065
  15. LEVOTHYROXIN [Concomitant]
     Active Substance: LEVOTHYROXINE
  16. METFORMIN [Concomitant]
     Active Substance: METFORMIN HYDROCHLORIDE
  17. METOPROLOL. [Concomitant]
     Active Substance: METOPROLOL
  18. PREGABALIN. [Concomitant]
     Active Substance: PREGABALIN
  19. LOSARTAN. [Concomitant]
     Active Substance: LOSARTAN
  20. MYCOPHENOLATE [Concomitant]
     Active Substance: MYCOPHENOLIC ACID
  21. MYRBETRIQ [Concomitant]
     Active Substance: MIRABEGRON
  22. SIMVASTATIN. [Concomitant]
     Active Substance: SIMVASTATIN
  23. ATORVASTATIN [Concomitant]
     Active Substance: ATORVASTATIN
     Dosage: UNK
     Route: 065
  24. KETOROLAC [Concomitant]
     Active Substance: KETOROLAC TROMETHAMINE
     Dosage: UNK
     Route: 065
  25. NITROFUR [Concomitant]
     Active Substance: NITROFURANTOIN
  26. TAMSULOSIN [Concomitant]
     Active Substance: TAMSULOSIN
  27. ZOLPIDEM [Concomitant]
     Active Substance: ZOLPIDEM TARTRATE

REACTIONS (2)
  - Pemphigoid [Not Recovered/Not Resolved]
  - Off label use [Unknown]

NARRATIVE: CASE EVENT DATE: 2020
